FAERS Safety Report 7889460-1 (Version None)
Quarter: 2011Q4

REPORT INFORMATION
  Report Type: 
  Country: None (occurrence: None)
  Receive Date: 20111103
  Receipt Date: 20111026
  Transmission Date: 20120403
  Serious: Yes (Other)
  Sender: FDA-Public Use
  Company Number: PHHY2011TR94317

PATIENT
  Age: 47 Year
  Sex: Male

DRUGS (6)
  1. MIVACURIUM CHLORIDE [Interacting]
     Dosage: 17 MG, UNK
  2. PROPOFOL [Concomitant]
     Dosage: 200 MG, UNK
  3. OXYGEN [Concomitant]
     Indication: GENERAL ANAESTHESIA
     Dosage: 100 %, UNK
  4. ISOFLURANE [Concomitant]
     Indication: GENERAL ANAESTHESIA
     Dosage: 0.5 %, UNK
  5. SERTRALINE HYDROCHLORIDE [Suspect]
     Indication: MAJOR DEPRESSION
     Dosage: 100 MG, DAILY
  6. NITROUS OXIDE [Concomitant]
     Indication: GENERAL ANAESTHESIA
     Dosage: 50 %, UNK

REACTIONS (3)
  - UNRESPONSIVE TO STIMULI [None]
  - PSEUDOCHOLINESTERASE DEFICIENCY [None]
  - DRUG INTERACTION [None]
